FAERS Safety Report 13039956 (Version 1)
Quarter: 2016Q4

REPORT INFORMATION
  Report Type: Spontaneous
  Country: US (occurrence: US)
  Receive Date: 20161219
  Receipt Date: 20161219
  Transmission Date: 20170207
  Serious: Yes (Disabling)
  Sender: FDA-Public Use
  Company Number: None

PATIENT

DRUGS (4)
  1. VITAMIN A [Concomitant]
     Active Substance: VITAMIN A
  2. ALENDRONATE SODIUM TABLETS USP [Suspect]
     Active Substance: ALENDRONATE SODIUM
     Indication: BONE DISORDER
     Route: 048
     Dates: start: 20161009, end: 20161030
  3. CALCIUM CITRATE [Concomitant]
     Active Substance: CALCIUM CITRATE
  4. VITAMIN D [Concomitant]
     Active Substance: CHOLECALCIFEROL

REACTIONS (6)
  - Pruritus [None]
  - Constipation [None]
  - Arthralgia [None]
  - Groin pain [None]
  - Eating disorder [None]
  - Back pain [None]

NARRATIVE: CASE EVENT DATE: 20161023
